FAERS Safety Report 10073022 (Version 1)
Quarter: 2014Q2

REPORT INFORMATION
  Report Type: Spontaneous
  Country: FR (occurrence: FR)
  Receive Date: 20140411
  Receipt Date: 20140411
  Transmission Date: 20141212
  Serious: Yes (Hospitalization)
  Sender: FDA-Public Use
  Company Number: FR-PFIZER INC-2014098896

PATIENT
  Age: 80 Year
  Sex: Female

DRUGS (10)
  1. ALDACTONE [Suspect]
     Indication: CARDIAC FAILURE
     Dosage: UNK
     Route: 048
     Dates: start: 201311
  2. GABAPENTIN [Suspect]
     Indication: RESTLESS LEGS SYNDROME
     Dosage: UNK
     Route: 048
  3. IMETH [Suspect]
     Indication: RHEUMATOID ARTHRITIS
     Dosage: 10 MG, WEEKLY (STRENGTH: 10 MG)
     Route: 048
     Dates: start: 201307, end: 201401
  4. IMETH [Suspect]
     Dosage: 15 MG, WEEKLY (STRENGTH: 10 MG)
     Route: 048
     Dates: start: 201401, end: 20140311
  5. VENLAFAXINE HCL [Suspect]
     Indication: DEPRESSION
     Dosage: UNK
     Route: 048
  6. CARDENSIEL [Suspect]
     Indication: CARDIAC FAILURE
     Dosage: UNK
     Route: 048
     Dates: start: 201311
  7. CORTANCYL [Suspect]
     Indication: RHEUMATOID ARTHRITIS
     Dosage: 5 MG, DAILY
     Route: 048
     Dates: start: 2013
  8. FUROSEMIDE [Suspect]
     Indication: CARDIAC FAILURE
     Dosage: UNK
     Route: 048
     Dates: start: 201311
  9. FOLIC ACID [Suspect]
     Indication: PROPHYLAXIS
     Dosage: UNK
     Route: 048
     Dates: start: 201307, end: 20140311
  10. ESOMEPRAZOLE [Concomitant]
     Dosage: UNK
     Route: 065

REACTIONS (3)
  - Systemic sclerosis [Not Recovered/Not Resolved]
  - Pleural effusion [Unknown]
  - Cardiac failure [Unknown]
